FAERS Safety Report 20555656 (Version 1)
Quarter: 2022Q1

REPORT INFORMATION
  Report Type: Spontaneous
  Country: US (occurrence: US)
  Receive Date: 20220304
  Receipt Date: 20220304
  Transmission Date: 20220423
  Serious: Yes (Other)
  Sender: FDA-Public Use
  Company Number: US-PURDUE-USA-2020-0283350

PATIENT

DRUGS (3)
  1. OXYCONTIN [Suspect]
     Active Substance: OXYCODONE HYDROCHLORIDE
     Indication: Product used for unknown indication
     Dosage: UNKNOWN
     Route: 048
     Dates: start: 2004
  2. OXYCONTIN [Suspect]
     Active Substance: OXYCODONE HYDROCHLORIDE
     Dosage: 200 MG WITH UNKNOWN FREQUENCY
     Route: 048
     Dates: start: 2006
  3. ACETAMINOPHEN\OXYCODONE HYDROCHLORIDE\OXYCODONE TEREPHTHALATE [Suspect]
     Active Substance: ACETAMINOPHEN\OXYCODONE HYDROCHLORIDE\OXYCODONE TEREPHTHALATE
     Indication: Product used for unknown indication
     Dosage: 6 PERCOCET, 10-325
     Route: 065

REACTIONS (9)
  - Mental impairment [Unknown]
  - Drug dependence [Unknown]
  - Erectile dysfunction [Unknown]
  - Emotional distress [Unknown]
  - Loss of personal independence in daily activities [Unknown]
  - Libido decreased [Unknown]
  - Pain [Unknown]
  - Depression [Unknown]
  - Drug withdrawal syndrome [Unknown]
